FAERS Safety Report 16828507 (Version 1)
Quarter: 2019Q3

REPORT INFORMATION
  Report Type: Spontaneous
  Country: US (occurrence: US)
  Receive Date: 20190919
  Receipt Date: 20190919
  Transmission Date: 20191005
  Serious: No
  Sender: FDA-Public Use
  Company Number: US-SA-2019SA260477

PATIENT
  Age: 39 Year
  Sex: Male
  Weight: 66.67 kg

DRUGS (13)
  1. NORMAL SALINE [Concomitant]
     Active Substance: SODIUM CHLORIDE
     Dosage: 0.9 %, UNK
     Route: 042
     Dates: start: 20190715
  2. LMX [LIDOCAINE] [Concomitant]
     Indication: PREMEDICATION
     Dosage: 4 %, UNK
     Route: 061
     Dates: start: 20190715
  3. DIPHENHYDRAMINE. [Concomitant]
     Active Substance: DIPHENHYDRAMINE
     Indication: ANAPHYLACTIC REACTION
     Dosage: 25 MG, PRN
     Route: 042
     Dates: start: 20190715
  4. STERILE WATER [Concomitant]
     Active Substance: WATER
     Dosage: 1 EACH, UNK
     Route: 042
     Dates: start: 20190715
  5. LISINOPRIL. [Concomitant]
     Active Substance: LISINOPRIL
     Dosage: 0.5 DF, AS DIRECTED BY PHYSICIAN
     Route: 048
     Dates: start: 20190715
  6. FABRAZYME [Suspect]
     Active Substance: AGALSIDASE BETA
     Indication: FABRY^S DISEASE
     Dosage: 70 MG, QOW
     Route: 041
     Dates: start: 20190708
  7. ZOFRAN [Suspect]
     Active Substance: ONDANSETRON HYDROCHLORIDE
     Indication: PREMEDICATION
     Dosage: 4 MG, UNK
     Route: 042
     Dates: start: 20190715
  8. SODIUM CHLORIDE. [Concomitant]
     Active Substance: SODIUM CHLORIDE
     Dosage: 0.90 %, UNK
     Route: 042
     Dates: start: 20190715
  9. PROVENTIL [Concomitant]
     Active Substance: ALBUTEROL
     Dosage: 2 PUFFS, QD
     Route: 055
     Dates: start: 20190715
  10. FLOVENT [Concomitant]
     Active Substance: FLUTICASONE PROPIONATE
     Dosage: 2 PUFFS, BID
     Route: 055
     Dates: start: 20190715
  11. ACETAMINOPHEN. [Concomitant]
     Active Substance: ACETAMINOPHEN
     Indication: PREMEDICATION
     Dosage: 1000 MG, UNK
     Route: 048
     Dates: start: 20190715
  12. EPINEPHRINE. [Concomitant]
     Active Substance: EPINEPHRINE
     Indication: ANAPHYLACTIC REACTION
     Dosage: 0.3 MG, PRN
     Route: 030
     Dates: start: 20190715
  13. PROBIOTICS NOS [Concomitant]
     Active Substance: PROBIOTICS NOS
     Dosage: 1 DF, QD
     Route: 048
     Dates: start: 20190702

REACTIONS (2)
  - Infusion site swelling [Recovering/Resolving]
  - Burning sensation [Unknown]
